FAERS Safety Report 10079083 (Version 1)
Quarter: 2014Q2

REPORT INFORMATION
  Report Type: Report from Study
  Country: BR (occurrence: BR)
  Receive Date: 20140415
  Receipt Date: 20140415
  Transmission Date: 20141212
  Serious: Yes (Hospitalization)
  Sender: FDA-Public Use
  Company Number: PHHY2014BR041406

PATIENT
  Sex: Female
  Weight: 55 kg

DRUGS (3)
  1. SANDOSTATIN LAR [Suspect]
     Indication: NEOPLASM MALIGNANT
     Dosage: UNK, EVERY 21 DAYS
  2. SANDOSTATIN LAR [Suspect]
     Indication: OFF LABEL USE
  3. LUFTAL [Concomitant]
     Indication: FLATULENCE
     Dosage: UNK, BID

REACTIONS (16)
  - Fall [Recovering/Resolving]
  - Immune system disorder [Recovering/Resolving]
  - Anaemia [Recovering/Resolving]
  - Dehydration [Recovering/Resolving]
  - Asthenia [Recovering/Resolving]
  - Abdominal distension [Recovering/Resolving]
  - Malignant neoplasm progression [Recovering/Resolving]
  - Metastases to ovary [Unknown]
  - Metastasis [Unknown]
  - Metastases to gastrointestinal tract [Recovering/Resolving]
  - Eating disorder [Recovering/Resolving]
  - Retching [Recovering/Resolving]
  - Nausea [Recovering/Resolving]
  - Pain [Recovering/Resolving]
  - Diarrhoea [Recovering/Resolving]
  - Constipation [Unknown]
